FAERS Safety Report 25982214 (Version 2)
Quarter: 2025Q4

REPORT INFORMATION
  Report Type: Report from Study
  Country: BR (occurrence: BR)
  Receive Date: 20251031
  Receipt Date: 20251105
  Transmission Date: 20260117
  Serious: Yes (Other)
  Sender: JOHNSON AND JOHNSON
  Company Number: BR-JNJFOC-20251035019

PATIENT
  Age: 33 Year
  Sex: Female

DRUGS (3)
  1. TOPAMAX [Suspect]
     Active Substance: TOPIRAMATE
     Indication: Migraine
     Route: 065
  2. BUPROPION [Concomitant]
     Active Substance: BUPROPION
     Indication: Prophylaxis
  3. QUETIAPINE ACCORD [QUETIAPINE] [Concomitant]
     Indication: Prophylaxis

REACTIONS (1)
  - Alice in wonderland syndrome [Unknown]
